FAERS Safety Report 6556167-2 (Version None)
Quarter: 2010Q1

REPORT INFORMATION
  Report Type: 
  Country: None (occurrence: None)
  Receive Date: 20100128
  Receipt Date: 20090522
  Transmission Date: 20100710
  Serious: Yes (Death)
  Sender: FDA-Public Use
  Company Number: US-TEVA-195852USA

PATIENT
  Sex: Female

DRUGS (3)
  1. COPAXONE [Suspect]
     Indication: MULTIPLE SCLEROSIS
     Route: 058
  2. TYLOX [Concomitant]
     Indication: PAIN
     Route: 048
  3. LORAZEPAM [Concomitant]
     Route: 048

REACTIONS (1)
  - MULTIPLE SCLEROSIS [None]
